FAERS Safety Report 23292135 (Version 1)
Quarter: 2023Q4

REPORT INFORMATION
  Report Type: Spontaneous
  Country: RS (occurrence: RS)
  Receive Date: 20231213
  Receipt Date: 20231213
  Transmission Date: 20240109
  Serious: Yes (Other)
  Sender: FDA-Public Use
  Company Number: RS-002147023-NVSC2023RS257759

PATIENT

DRUGS (2)
  1. RUXOLITINIB [Suspect]
     Active Substance: RUXOLITINIB
     Indication: Primary myelofibrosis
     Dosage: 10 MG, BID (2X1)
     Route: 065
     Dates: start: 20131126
  2. RUXOLITINIB [Suspect]
     Active Substance: RUXOLITINIB
     Dosage: 15 MG, BID
     Route: 065

REACTIONS (2)
  - Papillary thyroid cancer [Unknown]
  - Second primary malignancy [Unknown]
